FAERS Safety Report 9467099 (Version 1)
Quarter: 2013Q3

REPORT INFORMATION
  Report Type: Spontaneous
  Country: US (occurrence: US)
  Receive Date: 20130820
  Receipt Date: 20130820
  Transmission Date: 20140515
  Serious: Yes (Other)
  Sender: FDA-Public Use
  Company Number: US-RB-057336-13

PATIENT
  Sex: Female

DRUGS (4)
  1. SUBUTEX [Suspect]
     Indication: DRUG DEPENDENCE
     Dosage: CUTTING TO ACHIEVE DOSE
     Route: 060
  2. SUBOXONE TABLET [Suspect]
     Indication: DRUG DEPENDENCE
     Dosage: CUTTING TO ACHIEVE DOSE
     Route: 060
  3. SUBOXONE TABLET [Suspect]
     Dosage: DOSING DETAILS UNKNOWN
     Route: 060
  4. NICOTINE [Suspect]
     Indication: NICOTINE DEPENDENCE
     Dosage: 20 CIGARETTES PER DAY
     Route: 055

REACTIONS (7)
  - Wrong technique in drug usage process [Recovered/Resolved]
  - Pelvic pain [Recovered/Resolved]
  - Vaginal discharge [Recovered/Resolved]
  - Pain [Recovered/Resolved]
  - Exposure during pregnancy [Recovered/Resolved]
  - Abortion spontaneous [Recovered/Resolved]
  - Substance abuse [Recovered/Resolved]
